FAERS Safety Report 8921188 (Version 1)
Quarter: 2012Q4

REPORT INFORMATION
  Report Type: 
  Country: ES (occurrence: ES)
  Receive Date: 20121123
  Receipt Date: 20121123
  Transmission Date: 20130627
  Serious: Yes (Other)
  Sender: FDA-Public Use
  Company Number: ES-ABBOTT-12P-144-1011336-00

PATIENT
  Age: 27 Year
  Sex: Female

DRUGS (3)
  1. DEPAKINE CHRONO [Suspect]
     Indication: EPILEPSY
     Dosage: 300 mg daily
     Route: 048
     Dates: start: 1990
  2. DEPAKINE CHRONO [Suspect]
     Dosage: 500 mg daily
     Route: 048
     Dates: start: 1990, end: 2001
  3. CARBAMAZEPINE [Concomitant]
     Indication: PRODUCT USED FOR UNKNOWN INDICATION

REACTIONS (1)
  - Hypoglycaemia [Unknown]
